FAERS Safety Report 24196973 (Version 1)
Quarter: 2024Q3

REPORT INFORMATION
  Report Type: Spontaneous
  Country: FR (occurrence: FR)
  Receive Date: 20240810
  Receipt Date: 20240810
  Transmission Date: 20241016
  Serious: Yes (Death)
  Sender: SHILPA MEDICARE
  Company Number: FR-MERCK-1108FRA00054

PATIENT

DRUGS (2)
  1. DOCETAXEL [Suspect]
     Active Substance: DOCETAXEL\DOCETAXEL ANHYDROUS
     Indication: Chemotherapy
     Route: 042
  2. EMEND [Suspect]
     Active Substance: APREPITANT
     Indication: Product used for unknown indication
     Route: 048

REACTIONS (3)
  - Colitis ischaemic [Fatal]
  - Drug interaction [Unknown]
  - Dyspepsia [Unknown]
